FAERS Safety Report 12457929 (Version 4)
Quarter: 2016Q3

REPORT INFORMATION
  Report Type: Spontaneous
  Country: US (occurrence: US)
  Receive Date: 20160612
  Receipt Date: 20160703
  Transmission Date: 20161109
  Serious: Yes (Hospitalization, Other)
  Sender: FDA-Public Use
  Company Number: US-BAXTER-2016BAX030215

PATIENT
  Age: 71 Year
  Sex: Male

DRUGS (2)
  1. DIANEAL LOW CALCIUM PERITONEAL DIALYSIS SOLUTION WITH DEXTROSE [Suspect]
     Active Substance: CALCIUM CHLORIDE\DEXTROSE\MAGNESIUM CHLORIDE\SODIUM CHLORIDE\SODIUM LACTATE
     Indication: PERITONEAL DIALYSIS
     Route: 033
  2. DIANEAL LOW CALCIUM PERITONEAL DIALYSIS SOLUTION WITH DEXTROSE [Suspect]
     Active Substance: CALCIUM CHLORIDE\DEXTROSE\MAGNESIUM CHLORIDE\SODIUM CHLORIDE\SODIUM LACTATE
     Indication: PERITONEAL DIALYSIS
     Route: 033

REACTIONS (10)
  - Cardiac disorder [Recovering/Resolving]
  - Accident [Unknown]
  - Hypotension [Unknown]
  - Fall [Recovering/Resolving]
  - Heart rate increased [Unknown]
  - Pulmonary oedema [Recovering/Resolving]
  - Joint injury [Unknown]
  - Loss of consciousness [Unknown]
  - Overweight [Recovering/Resolving]
  - Amyloidosis [Unknown]

NARRATIVE: CASE EVENT DATE: 201606
